FAERS Safety Report 18839458 (Version 1)
Quarter: 2021Q1

REPORT INFORMATION
  Report Type: Spontaneous
  Country: US (occurrence: US)
  Receive Date: 20210203
  Receipt Date: 20210203
  Transmission Date: 20210419
  Serious: Yes (Other)
  Sender: FDA-Public Use
  Company Number: US-ALXN-A202101355

PATIENT
  Age: 30 Year
  Sex: Female

DRUGS (2)
  1. SOLIRIS [Suspect]
     Active Substance: ECULIZUMAB
     Indication: SOLID ORGAN TRANSPLANT
     Dosage: 1200 MG, UNK
     Route: 065
     Dates: start: 20210122
  2. SOLIRIS [Suspect]
     Active Substance: ECULIZUMAB
     Indication: OFF LABEL USE

REACTIONS (2)
  - Transfusion [Unknown]
  - Off label use [Unknown]

NARRATIVE: CASE EVENT DATE: 20210122
